FAERS Safety Report 5413015-1 (Version None)
Quarter: 2007Q3

REPORT INFORMATION
  Report Type: 
  Country: None (occurrence: None)
  Receive Date: 20070813
  Receipt Date: 20070803
  Transmission Date: 20080115
  Serious: Yes (Other)
  Sender: FDA-Public Use
  Company Number: BR-PFIZER INC-2007050620

PATIENT
  Sex: Female
  Weight: 62 kg

DRUGS (2)
  1. LIPITOR [Suspect]
     Indication: BLOOD CHOLESTEROL INCREASED
     Route: 048
     Dates: start: 20060501, end: 20070501
  2. OSCAL 500-D [Concomitant]
     Indication: OSTEOPENIA
     Route: 048

REACTIONS (12)
  - ALDOLASE INCREASED [None]
  - ANXIETY [None]
  - BLOOD CREATINE PHOSPHOKINASE INCREASED [None]
  - DEPRESSION [None]
  - ECCHYMOSIS [None]
  - FATIGUE [None]
  - HISTOLOGY ABNORMAL [None]
  - MUSCULAR WEAKNESS [None]
  - MYOPATHY [None]
  - MYOSITIS [None]
  - OSTEOPENIA [None]
  - VASCULITIS [None]
